FAERS Safety Report 5974888-7 (Version None)
Quarter: 2008Q4

REPORT INFORMATION
  Report Type: 
  Country: None (occurrence: None)
  Receive Date: 20081202
  Receipt Date: 20081124
  Transmission Date: 20090506
  Serious: Yes (Other)
  Sender: FDA-Public Use
  Company Number: US-PFIZER INC-2008099765

PATIENT
  Sex: Female
  Weight: 90.909 kg

DRUGS (6)
  1. LIPITOR [Suspect]
     Indication: BLOOD CHOLESTEROL INCREASED
     Dates: start: 20070601, end: 20070701
  2. AMITRIPTYLINE HCL [Suspect]
     Indication: PAIN IN EXTREMITY
     Dates: start: 20081117
  3. VALSARTAN [Concomitant]
  4. METOPROLOL TARTRATE [Concomitant]
  5. LASIX [Concomitant]
  6. PROZAC [Concomitant]
     Indication: DEPRESSION

REACTIONS (5)
  - DRY MOUTH [None]
  - MYALGIA [None]
  - NEURITIS [None]
  - NEUROPATHY PERIPHERAL [None]
  - PAIN IN EXTREMITY [None]
